FAERS Safety Report 5909699-1 (Version None)
Quarter: 2008Q4

REPORT INFORMATION
  Report Type: 
  Country: None (occurrence: None)
  Receive Date: 20081006
  Receipt Date: 20081006
  Transmission Date: 20090506
  Serious: Yes (Life-Threatening, Hospitalization)
  Sender: FDA-Public Use
  Company Number: None

PATIENT
  Sex: Female
  Weight: 76.2043 kg

DRUGS (2)
  1. RISPERIDONE [Suspect]
     Indication: SCHIZOPHRENIA, PARANOID TYPE
     Dosage: 0.5MG AT HS PO
     Route: 048
     Dates: start: 20080924, end: 20080930
  2. COGENTIN [Concomitant]

REACTIONS (4)
  - DRUG INEFFECTIVE [None]
  - HALLUCINATIONS, MIXED [None]
  - SCREAMING [None]
  - THERAPEUTIC RESPONSE UNEXPECTED WITH DRUG SUBSTITUTION [None]
